FAERS Safety Report 11174967 (Version 1)
Quarter: 2015Q2

REPORT INFORMATION
  Report Type: Spontaneous
  Country: US (occurrence: None)
  Receive Date: 20150608
  Receipt Date: 20150608
  Transmission Date: 20150821
  Serious: Yes (Other)
  Sender: FDA-Public Use
  Company Number: None

PATIENT
  Age: 61 Year
  Sex: Female
  Weight: 83.46 kg

DRUGS (1)
  1. ENBREL [Suspect]
     Active Substance: ETANERCEPT
     Indication: RHEUMATOID ARTHRITIS
     Dates: start: 20150402, end: 20150511

REACTIONS (7)
  - Amnesia [None]
  - Erythema [None]
  - Pyrexia [None]
  - Blood pressure increased [None]
  - Infection [None]
  - Pain in extremity [None]
  - Voluntary redundancy [None]

NARRATIVE: CASE EVENT DATE: 20150511
